FAERS Safety Report 7290861-3 (Version None)
Quarter: 2011Q1

REPORT INFORMATION
  Report Type: 
  Country: None (occurrence: None)
  Receive Date: 20110214
  Receipt Date: 20110131
  Transmission Date: 20110831
  Serious: Yes (Other)
  Sender: FDA-Public Use
  Company Number: US-BAYER-2011-012897

PATIENT
  Sex: Female

DRUGS (1)
  1. BETASERON [Suspect]
     Indication: RELAPSING-REMITTING MULTIPLE SCLEROSIS
     Dosage: UNK
     Route: 058
     Dates: end: 20090101

REACTIONS (5)
  - ENCEPHALITIS [None]
  - RABIES [None]
  - SKIN DISCOLOURATION [None]
  - HEPATIC ENZYME INCREASED [None]
  - ANIMAL BITE [None]
